APPROVED DRUG PRODUCT: PATANASE
Active Ingredient: OLOPATADINE HYDROCHLORIDE
Strength: 0.665MG/SPRAY **Federal Register determination that product was not discontinued or withdrawn for safety or effectiveness reasons**
Dosage Form/Route: SPRAY, METERED;NASAL
Application: N021861 | Product #001
Applicant: NOVARTIS PHARMACEUTICALS CORP
Approved: Apr 15, 2008 | RLD: Yes | RS: No | Type: DISCN